FAERS Safety Report 7927721-8 (Version None)
Quarter: 2011Q4

REPORT INFORMATION
  Report Type: 
  Country: None (occurrence: None)
  Receive Date: 20111118
  Receipt Date: 20111117
  Transmission Date: 20120403
  Serious: Yes (Hospitalization, Other)
  Sender: FDA-Public Use
  Company Number: US-ACTELION-A-NJ2009-24686

PATIENT

DRUGS (2)
  1. TRACLEER [Suspect]
     Indication: PULMONARY ARTERIAL HYPERTENSION
     Dosage: UNK
     Route: 048
     Dates: start: 20080807
  2. FERON [Concomitant]

REACTIONS (7)
  - FACETECTOMY [None]
  - SPINAL LAMINECTOMY [None]
  - FORAMINOTOMY [None]
  - POST PROCEDURAL COMPLICATION [None]
  - FATIGUE [None]
  - BLOOD IRON DECREASED [None]
  - BACK PAIN [None]
